FAERS Safety Report 14212786 (Version 1)
Quarter: 2017Q4

REPORT INFORMATION
  Report Type: Spontaneous
  Country: US (occurrence: US)
  Receive Date: 20171121
  Receipt Date: 20171121
  Transmission Date: 20180321
  Serious: No
  Sender: FDA-Public Use
  Company Number: US-CIPLA LTD.-2017US01298

PATIENT

DRUGS (2)
  1. CITALOPRAM [Suspect]
     Active Substance: CITALOPRAM HYDROBROMIDE
     Dosage: UNK
     Route: 065
  2. CITALOPRAM [Suspect]
     Active Substance: CITALOPRAM HYDROBROMIDE
     Dosage: UNK
     Route: 065
     Dates: start: 20161115

REACTIONS (7)
  - Paraesthesia [Unknown]
  - Dysarthria [Unknown]
  - Hyperhidrosis [Unknown]
  - Headache [Unknown]
  - Product substitution issue [Unknown]
  - Confusional state [Unknown]
  - Tachycardia [Unknown]
